FAERS Safety Report 21157095 (Version 1)
Quarter: 2022Q3

REPORT INFORMATION
  Report Type: Spontaneous
  Country: US (occurrence: None)
  Receive Date: 20220729
  Receipt Date: 20220729
  Transmission Date: 20221026
  Serious: Yes (Hospitalization)
  Sender: FDA-Public Use
  Company Number: None

PATIENT
  Age: 85 Year
  Sex: Male
  Weight: 76.5 kg

DRUGS (2)
  1. RITUXAN [Suspect]
     Active Substance: RITUXIMAB
     Indication: Pemphigoid
     Dosage: OTHER FREQUENCY : DAY 0 AND DAY 15;?
     Route: 042
     Dates: start: 20220729, end: 20220729
  2. RITUXAN [Suspect]
     Active Substance: RITUXIMAB
     Indication: Pemphigoid
     Dosage: OTHER FREQUENCY : DAY 0 AND DAY 15;?
     Route: 042
     Dates: start: 20220729, end: 20220729

REACTIONS (4)
  - Dyspnoea [None]
  - Oxygen saturation decreased [None]
  - Cyanosis [None]
  - Infusion related reaction [None]

NARRATIVE: CASE EVENT DATE: 20220729
